FAERS Safety Report 25233327 (Version 1)
Quarter: 2025Q2

REPORT INFORMATION
  Report Type: Report from Study
  Country: CN (occurrence: CN)
  Receive Date: 20250424
  Receipt Date: 20250424
  Transmission Date: 20250717
  Serious: Yes (Death, Other)
  Sender: ROCHE
  Company Number: CN-ROCHE-10000264833

PATIENT

DRUGS (9)
  1. RITUXIMAB [Suspect]
     Active Substance: RITUXIMAB
     Indication: B-cell lymphoma refractory
     Route: 042
  2. TUCIDINOSTAT [Suspect]
     Active Substance: TUCIDINOSTAT
     Indication: B-cell lymphoma refractory
     Route: 065
  3. ETOPOSIDE [Suspect]
     Active Substance: ETOPOSIDE
     Indication: B-cell lymphoma refractory
     Route: 065
  4. ETOPOSIDE [Suspect]
     Active Substance: ETOPOSIDE
     Dosage: 75-100 MG/M2
     Route: 065
  5. CYTARABINE [Suspect]
     Active Substance: CYTARABINE
     Indication: B-cell lymphoma refractory
     Route: 048
  6. CYTARABINE [Suspect]
     Active Substance: CYTARABINE
     Route: 048
  7. CYTARABINE [Suspect]
     Active Substance: CYTARABINE
     Dosage: 200 - 300 MG/M2
     Route: 065
  8. CYCLOPHOSPHAMIDE [Suspect]
     Active Substance: CYCLOPHOSPHAMIDE
     Indication: B-cell lymphoma refractory
     Route: 065
  9. LENALIDOMIDE [Suspect]
     Active Substance: LENALIDOMIDE
     Indication: B-cell lymphoma refractory
     Dosage: 20 MG/25 MG
     Route: 065

REACTIONS (10)
  - Pneumonia [Fatal]
  - COVID-19 pneumonia [Fatal]
  - Abdominal infection [Fatal]
  - Diarrhoea [Recovered/Resolved]
  - Septic shock [Unknown]
  - Acute left ventricular failure [Unknown]
  - Leukopenia [Unknown]
  - Herpes zoster [Unknown]
  - Rash [Recovered/Resolved]
  - Pruritus [Recovered/Resolved]
